FAERS Safety Report 19818489 (Version 3)
Quarter: 2021Q3

REPORT INFORMATION
  Report Type: Spontaneous
  Country: KW (occurrence: KW)
  Receive Date: 20210911
  Receipt Date: 20210925
  Transmission Date: 20211014
  Serious: Yes (Other)
  Sender: FDA-Public Use
  Company Number: NVSC2021KW198985

PATIENT
  Age: 84 Year
  Sex: Male

DRUGS (4)
  1. BEOVU [Suspect]
     Active Substance: BROLUCIZUMAB-DBLL
     Dosage: 6 MG, (BOTH EYES)
     Route: 047
  2. LUCENTIS [Suspect]
     Active Substance: RANIBIZUMAB
     Indication: PRODUCT USED FOR UNKNOWN INDICATION
     Dosage: UNK, RIGHT EYE
     Route: 031
  3. BEOVU [Suspect]
     Active Substance: BROLUCIZUMAB-DBLL
     Indication: NEOVASCULAR AGE-RELATED MACULAR DEGENERATION
     Dosage: UNK, (RIGHT EYE)
     Route: 031
     Dates: start: 20210608
  4. LUCENTIS [Suspect]
     Active Substance: RANIBIZUMAB
     Dosage: UNK, (RIGHT EYE)
     Route: 031
     Dates: start: 202101

REACTIONS (10)
  - Visual acuity reduced [Recovering/Resolving]
  - Vitreous opacities [Recovering/Resolving]
  - Corneal opacity [Recovering/Resolving]
  - Dry eye [Recovering/Resolving]
  - Retinal vasculitis [Recovering/Resolving]
  - Ocular hyperaemia [Recovering/Resolving]
  - Vitreous detachment [Recovering/Resolving]
  - Retinal oedema [Recovering/Resolving]
  - Retinal haemorrhage [Recovering/Resolving]
  - Optic disc haemorrhage [Recovering/Resolving]

NARRATIVE: CASE EVENT DATE: 202106
